FAERS Safety Report 5976066-4 (Version None)
Quarter: 2008Q4

REPORT INFORMATION
  Report Type: 
  Country: None (occurrence: None)
  Receive Date: 20081202
  Receipt Date: 20081127
  Transmission Date: 20090506
  Serious: Yes (Life-Threatening, Hospitalization)
  Sender: FDA-Public Use
  Company Number: LU-ABBOTT-07P-098-0417055-00

PATIENT

DRUGS (4)
  1. HUMIRA [Suspect]
     Indication: CROHN'S DISEASE
     Dates: start: 20070810, end: 20080824
  2. METHYLPREDNISOLONE 16MG TAB [Concomitant]
     Indication: LEUKOPENIA
     Dates: end: 20050101
  3. METHYLPREDNISOLONE 16MG TAB [Concomitant]
     Dates: start: 20070401
  4. AZATHIOPRINE [Concomitant]
     Indication: LEUKOPENIA

REACTIONS (5)
  - ASPERGILLOSIS [None]
  - LUNG ABSCESS [None]
  - PANCYTOPENIA [None]
  - PNEUMONIA [None]
  - TYMPANIC MEMBRANE PERFORATION [None]
